FAERS Safety Report 13773056 (Version 2)
Quarter: 2017Q3

REPORT INFORMATION
  Report Type: Spontaneous
  Country: US (occurrence: US)
  Receive Date: 20170720
  Receipt Date: 20170724
  Transmission Date: 20171127
  Serious: Yes (Hospitalization)
  Sender: FDA-Public Use
  Company Number: US-SUN PHARMACEUTICAL INDUSTRIES LTD-2017US-145829

PATIENT
  Age: 29 Year
  Sex: Male

DRUGS (2)
  1. PHENYLEPHRINE [Suspect]
     Active Substance: PHENYLEPHRINE\PHENYLEPHRINE HYDROCHLORIDE
     Indication: PRIAPISM
     Dosage: UNK
     Route: 017
  2. SUDAFED [Suspect]
     Active Substance: PSEUDOEPHEDRINE HYDROCHLORIDE
     Indication: PRIAPISM
     Dosage: HIGH DOSES
     Route: 065

REACTIONS (4)
  - Acute myocardial infarction [Unknown]
  - Cardiogenic shock [Unknown]
  - Hypertensive emergency [Unknown]
  - Acute pulmonary oedema [Unknown]
